FAERS Safety Report 16854309 (Version 4)
Quarter: 2023Q4

REPORT INFORMATION
  Report Type: Spontaneous
  Country: US (occurrence: US)
  Receive Date: 20190926
  Receipt Date: 20231123
  Transmission Date: 20240110
  Serious: Yes (Hospitalization, Other)
  Sender: FDA-Public Use
  Company Number: US-GILEAD-2019-0429229

PATIENT
  Age: 51 Year
  Sex: Male
  Weight: 95.238 kg

DRUGS (42)
  1. ATRIPLA [Suspect]
     Active Substance: EFAVIRENZ\EMTRICITABINE\TENOFOVIR DISOPROXIL FUMARATE
     Indication: HIV infection
     Dosage: UNK
     Route: 048
     Dates: start: 2006, end: 20150615
  2. ATRIPLA [Suspect]
     Active Substance: EFAVIRENZ\EMTRICITABINE\TENOFOVIR DISOPROXIL FUMARATE
     Dosage: UNK
     Route: 048
     Dates: start: 2008, end: 20150615
  3. BIKTARVY [Concomitant]
     Active Substance: BICTEGRAVIR SODIUM\EMTRICITABINE\TENOFOVIR ALAFENAMIDE FUMARATE
  4. EPIVIR [Concomitant]
     Active Substance: LAMIVUDINE
  5. ISENTRESS [Concomitant]
     Active Substance: RALTEGRAVIR POTASSIUM
  6. TIVICAY [Concomitant]
     Active Substance: DOLUTEGRAVIR SODIUM
  7. ABACAVIR [Concomitant]
     Active Substance: ABACAVIR
  8. PROVENTIL [Concomitant]
     Active Substance: ALBUTEROL
  9. ABILIFY [Concomitant]
     Active Substance: ARIPIPRAZOLE
  10. ACETAMINOPHEN [Concomitant]
     Active Substance: ACETAMINOPHEN
  11. VALACYCLOVIR HYDROCHLORIDE [Concomitant]
     Active Substance: VALACYCLOVIR HYDROCHLORIDE
  12. ASPIRIN [Concomitant]
     Active Substance: ASPIRIN
  13. BUPROPION [Concomitant]
     Active Substance: BUPROPION
  14. CHLORHEXIDINE [Concomitant]
     Active Substance: CHLORHEXIDINE\CHLORHEXIDINE GLUCONATE
  15. CLINDAMYCIN [Concomitant]
     Active Substance: CLINDAMYCIN
  16. CLONAZEPAM [Concomitant]
     Active Substance: CLONAZEPAM
  17. CLONIDINE [Concomitant]
     Active Substance: CLONIDINE
  18. DEXTROSE [Concomitant]
     Active Substance: DEXTROSE\DEXTROSE MONOHYDRATE
  19. DILANTIN [Concomitant]
     Active Substance: PHENYTOIN
  20. DIPHENHYDRAMINE [Concomitant]
     Active Substance: DIPHENHYDRAMINE
  21. DOCUSATE [Concomitant]
     Active Substance: DOCUSATE
  22. DULOXETINE HYDROCHLORIDE [Concomitant]
     Active Substance: DULOXETINE HYDROCHLORIDE
  23. EPINEPHRINE [Concomitant]
     Active Substance: EPINEPHRINE
  24. IBUPROFEN [Concomitant]
     Active Substance: IBUPROFEN
  25. PRINIVIL [Concomitant]
     Active Substance: LISINOPRIL
  26. ZESTRIL [Concomitant]
     Active Substance: LISINOPRIL
  27. LABETALOL [Concomitant]
     Active Substance: LABETALOL\LABETALOL HYDROCHLORIDE
  28. VALIUM [Concomitant]
     Active Substance: DIAZEPAM
  29. VENOFER [Concomitant]
     Active Substance: IRON SUCROSE
  30. LISINOPRIL [Concomitant]
     Active Substance: LISINOPRIL
  31. LYRICA [Concomitant]
     Active Substance: PREGABALIN
  32. MELOXICAM [Concomitant]
     Active Substance: MELOXICAM
  33. NITROSTAT [Concomitant]
     Active Substance: NITROGLYCERIN
  34. ONDANSETRON [Concomitant]
     Active Substance: ONDANSETRON
  35. PROAIR HFA [Concomitant]
     Active Substance: ALBUTEROL SULFATE
  36. SHINGRIX [Concomitant]
     Active Substance: RECOMBINANT VARICELLA ZOSTER VIRUS (VZV) GLYCOPROTEIN E
  37. SIMVASTATIN [Concomitant]
     Active Substance: SIMVASTATIN
  38. ZIAGEN [Concomitant]
     Active Substance: ABACAVIR SULFATE
  39. ZERIT [Concomitant]
     Active Substance: STAVUDINE
  40. VENTOLIN HFA [Concomitant]
     Active Substance: ALBUTEROL SULFATE
  41. ZOLPIDEM TARTRATE [Concomitant]
     Active Substance: ZOLPIDEM TARTRATE
  42. LAMICTAL [Concomitant]
     Active Substance: LAMOTRIGINE

REACTIONS (20)
  - End stage renal disease [Not Recovered/Not Resolved]
  - Renal failure [Recovered/Resolved]
  - Renal failure [Not Recovered/Not Resolved]
  - Acute kidney injury [Not Recovered/Not Resolved]
  - Renal transplant [Not Recovered/Not Resolved]
  - Loss of personal independence in daily activities [Not Recovered/Not Resolved]
  - Quality of life decreased [Not Recovered/Not Resolved]
  - Fear [Not Recovered/Not Resolved]
  - Mobility decreased [Not Recovered/Not Resolved]
  - Unemployment [Not Recovered/Not Resolved]
  - Emotional distress [Not Recovered/Not Resolved]
  - Anhedonia [Not Recovered/Not Resolved]
  - Anxiety [Not Recovered/Not Resolved]
  - Pain [Not Recovered/Not Resolved]
  - Fatigue [Not Recovered/Not Resolved]
  - Depression [Not Recovered/Not Resolved]
  - Migraine [Not Recovered/Not Resolved]
  - Hyperparathyroidism secondary [Not Recovered/Not Resolved]
  - Anaemia [Not Recovered/Not Resolved]
  - Blood creatinine increased [Unknown]

NARRATIVE: CASE EVENT DATE: 20100101
